FAERS Safety Report 7537141-6 (Version None)
Quarter: 2011Q2

REPORT INFORMATION
  Report Type: 
  Country: None (occurrence: None)
  Receive Date: 20110609
  Receipt Date: 20110606
  Transmission Date: 20111010
  Serious: Yes (Death)
  Sender: FDA-Public Use
  Company Number: PHHY2011US49334

PATIENT
  Sex: Female
  Weight: 58.957 kg

DRUGS (1)
  1. EXJADE [Suspect]
     Indication: THALASSAEMIA SICKLE CELL
     Dosage: 250 MG, UNK
     Route: 048
     Dates: start: 20060614

REACTIONS (1)
  - DEATH [None]
